FAERS Safety Report 8020025-7 (Version None)
Quarter: 2012Q1

REPORT INFORMATION
  Report Type: 
  Country: None (occurrence: None)
  Receive Date: 20120103
  Receipt Date: 20111227
  Transmission Date: 20120608
  Serious: Yes (Other)
  Sender: FDA-Public Use
  Company Number: PHHY2011FR80307

PATIENT
  Sex: Female
  Weight: 65 kg

DRUGS (3)
  1. AFINITOR [Suspect]
     Indication: RENAL CANCER METASTATIC
     Dosage: 10 MG, DAILY
     Dates: start: 20110621, end: 20110905
  2. AFINITOR [Suspect]
     Dosage: 5 MG
     Route: 048
     Dates: start: 20110929
  3. SUTENT [Concomitant]

REACTIONS (3)
  - LUNG DISORDER [None]
  - COUGH [None]
  - DYSPNOEA [None]
